FAERS Safety Report 8746678 (Version 3)
Quarter: 2012Q4

REPORT INFORMATION
  Report Type: 
  Country: US (occurrence: US)
  Receive Date: 20120827
  Receipt Date: 20121018
  Transmission Date: 20130627
  Serious: Yes (Other)
  Sender: FDA-Public Use
  Company Number: US-PFIZER INC-2012207398

PATIENT
  Sex: Female

DRUGS (2)
  1. CADUET [Suspect]
     Dosage: 10/20 mg,UNK
  2. ZOLOFT [Concomitant]
     Dosage: 100 mg, UNK

REACTIONS (2)
  - Macular degeneration [Unknown]
  - Blindness [Unknown]
